FAERS Safety Report 15967244 (Version 1)
Quarter: 2019Q1

REPORT INFORMATION
  Report Type: Spontaneous
  Country: FR (occurrence: FR)
  Receive Date: 20190215
  Receipt Date: 20190215
  Transmission Date: 20190418
  Serious: Yes (Hospitalization)
  Sender: FDA-Public Use
  Company Number: FR-TEVA-2019-FR-1011432

PATIENT
  Age: 72 Year
  Sex: Male

DRUGS (18)
  1. FINASTERIDE. [Concomitant]
     Active Substance: FINASTERIDE
  2. MIANSERINE (CHLORHYDRATE DE) [Concomitant]
     Active Substance: MIANSERIN HYDROCHLORIDE
  3. BACTRIM [Suspect]
     Active Substance: SULFAMETHOXAZOLE\TRIMETHOPRIM
     Indication: OSTEITIS
     Dosage: 4 DOSAGE FORMS DAILY;
     Route: 048
     Dates: start: 20181214, end: 20190109
  4. DAFALGAN [Concomitant]
     Active Substance: ACETAMINOPHEN
  5. FLUVASTATINE BASE [Concomitant]
     Active Substance: FLUVASTATIN SODIUM
  6. LOVENOX [Concomitant]
     Active Substance: ENOXAPARIN SODIUM
  7. REFRESH, COLLYRE EN R?CIPIENT UNIDOSE [Concomitant]
  8. GAVISCON [Concomitant]
     Active Substance: ALUMINUM HYDROXIDE\MAGNESIUM CARBONATE
  9. ACUPAN [Concomitant]
     Active Substance: NEFOPAM HYDROCHLORIDE
  10. OMEPRAZOLE. [Concomitant]
     Active Substance: OMEPRAZOLE
  11. OLANZAPINE. [Suspect]
     Active Substance: OLANZAPINE
     Indication: PRODUCT USED FOR UNKNOWN INDICATION
     Dosage: 10 MILLIGRAM DAILY;
     Route: 048
     Dates: end: 20190111
  12. SPIRIVA [Concomitant]
     Active Substance: TIOTROPIUM BROMIDE MONOHYDRATE
  13. RESITUNE 75 MG, COMPRIM? GASTRO-R?SISTANT [Concomitant]
     Active Substance: ASPIRIN
  14. PIVALONE 1 POUR CENT, SUSPENSION NASALE [Concomitant]
     Active Substance: TIXOCORTOL PIVALATE
  15. PRINCI B [Concomitant]
  16. MONOPROST 50 MICROGRAMMES/ML, COLLYRE EN SOLUTION EN R?CIPIENT UNIDOSE [Concomitant]
     Active Substance: LATANOPROST
  17. CEFOTAXIME [Suspect]
     Active Substance: CEFOTAXIME SODIUM
     Indication: OSTEITIS
     Dosage: 9 GRAM DAILY;
     Route: 042
     Dates: start: 20181214, end: 20190109
  18. UROREC 8 MG, G?LULE [Concomitant]

REACTIONS (1)
  - Pancytopenia [Recovering/Resolving]

NARRATIVE: CASE EVENT DATE: 20190109
